FAERS Safety Report 14249188 (Version 3)
Quarter: 2018Q2

REPORT INFORMATION
  Report Type: Report from Study
  Country: US (occurrence: US)
  Receive Date: 20171204
  Receipt Date: 20180406
  Transmission Date: 20180711
  Serious: Yes (Hospitalization, Congenital Anomaly, Other)
  Sender: FDA-Public Use
  Company Number: US-ACTELION-A-NJ2017-157075

PATIENT
  Age: 59 Year
  Sex: Female
  Weight: 126.98 kg

DRUGS (14)
  1. SILDENAFIL CITRATE. [Concomitant]
     Active Substance: SILDENAFIL CITRATE
     Dosage: 40 MG, TID
  2. VITAMIN D3 [Concomitant]
     Active Substance: CHOLECALCIFEROL
     Dosage: 2000 U, QD
  3. FLECAINIDE [Concomitant]
     Active Substance: FLECAINIDE
     Dosage: 75 MG, BID
  4. CELEXA [Concomitant]
     Active Substance: CITALOPRAM HYDROBROMIDE
  5. UPTRAVI [Suspect]
     Active Substance: SELEXIPAG
     Indication: PULMONARY ARTERIAL HYPERTENSION
     Dosage: 1400 MCG, BID
     Route: 048
     Dates: start: 20180109
  6. UPTRAVI [Suspect]
     Active Substance: SELEXIPAG
     Dosage: 200 MCG, BID
     Route: 048
  7. WARFARIN [Concomitant]
     Active Substance: WARFARIN
  8. SOTALOL. [Concomitant]
     Active Substance: SOTALOL
  9. TORSEMIDE. [Concomitant]
     Active Substance: TORSEMIDE
     Dosage: 100 MG, QAM
  10. UPTRAVI [Suspect]
     Active Substance: SELEXIPAG
     Dosage: 1200 MCG, BID
     Route: 048
  11. OPSUMIT [Suspect]
     Active Substance: MACITENTAN
     Indication: PULMONARY ARTERIAL HYPERTENSION
     Dosage: 10 MG, QD
     Route: 048
     Dates: start: 20160908
  12. UPTRAVI [Suspect]
     Active Substance: SELEXIPAG
     Dosage: 400 MCG, BID
     Route: 048
  13. POTASSIUM [Concomitant]
     Active Substance: POTASSIUM
     Dosage: 40 MEQ, BID
     Route: 048
  14. SYNTHROID [Concomitant]
     Active Substance: LEVOTHYROXINE SODIUM
     Dosage: 224 MCG, QD

REACTIONS (17)
  - Cardiac disorder [Unknown]
  - Headache [Unknown]
  - Diarrhoea [Recovering/Resolving]
  - Skin discolouration [Not Recovered/Not Resolved]
  - Arthralgia [Unknown]
  - Heart rate irregular [Unknown]
  - Pain [Unknown]
  - Prothrombin time prolonged [Unknown]
  - Pain in extremity [Unknown]
  - Cardioversion [Recovered/Resolved]
  - Myalgia [Unknown]
  - Fatigue [Unknown]
  - Nausea [Unknown]
  - Echocardiogram [Recovered/Resolved]
  - Cyanosis [Not Recovered/Not Resolved]
  - Raynaud^s phenomenon [Unknown]
  - Cystitis [Unknown]

NARRATIVE: CASE EVENT DATE: 20161013
